FAERS Safety Report 6892534-5 (Version None)
Quarter: 2010Q3

REPORT INFORMATION
  Report Type: 
  Country: None (occurrence: None)
  Receive Date: 20100731
  Receipt Date: 20080623
  Transmission Date: 20110219
  Serious: No
  Sender: FDA-Public Use
  Company Number: US-PFIZER INC-2008056013

PATIENT
  Age: 68 Year
  Sex: Female

DRUGS (11)
  1. NORVASC [Suspect]
     Indication: HYPERTENSION
  2. NAMENDA [Suspect]
     Indication: NEUROPATHY PERIPHERAL
     Route: 048
     Dates: start: 20080523
  3. NAMENDA [Suspect]
     Indication: BURNING SENSATION
  4. LIPITOR [Concomitant]
  5. FUROSEMIDE [Concomitant]
  6. ANAGRELIDE HCL [Concomitant]
     Dates: start: 20000101
  7. AVAPRO [Concomitant]
  8. COREG [Concomitant]
  9. VITAMINS [Concomitant]
  10. XANAX [Concomitant]
  11. ACETYLSALICYLIC ACID SRT [Concomitant]

REACTIONS (1)
  - OEDEMA PERIPHERAL [None]
